FAERS Safety Report 4678084-5 (Version None)
Quarter: 2005Q2

REPORT INFORMATION
  Report Type: 
  Country: None (occurrence: None)
  Receive Date: 20050601
  Receipt Date: 20050520
  Transmission Date: 20051028
  Serious: Yes (Hospitalization)
  Sender: FDA-Public Use
  Company Number: NSADSS2002022745

PATIENT
  Sex: Male

DRUGS (9)
  1. REMICADE [Suspect]
     Route: 041
  2. REMICADE [Suspect]
     Route: 041
  3. REMICADE [Suspect]
     Route: 041
  4. REMICADE [Suspect]
     Indication: ANKYLOSING SPONDYLITIS
     Route: 041
  5. METHOTREXATE [Concomitant]
  6. KOLCHICIN [Concomitant]
  7. LEDERSPAN [Concomitant]
     Route: 050
  8. FOLACIN [Concomitant]
  9. FOLACIN [Concomitant]

REACTIONS (2)
  - PNEUMOCYSTIS JIROVECI PNEUMONIA [None]
  - TUBERCULOSIS [None]
